FAERS Safety Report 6649134-1 (Version None)
Quarter: 2010Q1

REPORT INFORMATION
  Report Type: 
  Country: None (occurrence: None)
  Receive Date: 20100324
  Receipt Date: 20100318
  Transmission Date: 20100710
  Serious: Yes (Death, Life-Threatening, Other)
  Sender: FDA-Public Use
  Company Number: US-CELGENEUS-163-21880-10021042

PATIENT
  Sex: Male

DRUGS (13)
  1. REVLIMID [Suspect]
     Route: 048
     Dates: start: 20091001, end: 20091201
  2. ASPIRIN [Concomitant]
     Indication: DRUG USE FOR UNKNOWN INDICATION
     Route: 065
  3. ADVAIR DISKUS 100/50 [Concomitant]
     Indication: ASTHMA
     Dosage: 250/50
     Route: 065
  4. ADVAIR DISKUS 100/50 [Concomitant]
  5. ALBUTEROL [Concomitant]
     Indication: ASTHMA
     Route: 065
  6. ALBUTEROL [Concomitant]
  7. TIOTROPIUM [Concomitant]
     Indication: ASTHMA
     Route: 065
  8. TIOTROPIUM [Concomitant]
  9. BUDESONIDE [Concomitant]
     Indication: ASTHMA
     Route: 065
  10. BUDESONIDE [Concomitant]
  11. FAMOTIDINE [Concomitant]
     Indication: DRUG USE FOR UNKNOWN INDICATION
     Route: 065
  12. AVODART [Concomitant]
     Indication: DRUG USE FOR UNKNOWN INDICATION
     Route: 065
  13. LASIX [Concomitant]
     Indication: DRUG USE FOR UNKNOWN INDICATION
     Route: 065

REACTIONS (2)
  - NEOPLASM PROGRESSION [None]
  - NO THERAPEUTIC RESPONSE [None]
